FAERS Safety Report 6282380-8 (Version None)
Quarter: 2009Q3

REPORT INFORMATION
  Report Type: 
  Country: None (occurrence: None)
  Receive Date: 20090724
  Receipt Date: 20090715
  Transmission Date: 20100115
  Serious: Yes (Other)
  Sender: FDA-Public Use
  Company Number: DK-AVENTIS-200917187GDDC

PATIENT
  Age: 53 Year
  Sex: Female
  Weight: 87.4 kg

DRUGS (1)
  1. TAXOTERE [Suspect]
     Dosage: DOSE QUANTITY: 40; DOSE UNIT: MILLIGRAM PER MILLILITRE
     Route: 042

REACTIONS (1)
  - TYPE 2 DIABETES MELLITUS [None]
